FAERS Safety Report 8049404-9 (Version None)
Quarter: 2012Q1

REPORT INFORMATION
  Report Type: 
  Country: None (occurrence: None)
  Receive Date: 20120117
  Receipt Date: 20120109
  Transmission Date: 20120608
  Serious: Yes (Other)
  Sender: FDA-Public Use
  Company Number: CA-PFIZER INC-2012005753

PATIENT
  Age: 63 Year
  Sex: Female

DRUGS (4)
  1. XALATAN [Suspect]
     Indication: GLAUCOMA
     Dosage: 1 GTT, 1X/DAY IN BOTH EYES
     Route: 047
     Dates: start: 20100101
  2. COSOPT [Concomitant]
     Dosage: UNK IN RIGHT EYE
     Dates: end: 20110801
  3. REFRESH TEARS [Concomitant]
     Dosage: UNK
  4. XALATAN [Suspect]
     Dosage: 1 GTT, 1X/DAY IN LEFT EYE ONLY

REACTIONS (1)
  - GLAUCOMA SURGERY [None]
